FAERS Safety Report 18275138 (Version 5)
Quarter: 2023Q2

REPORT INFORMATION
  Report Type: Report from Study
  Country: GR (occurrence: GR)
  Receive Date: 20200916
  Receipt Date: 20230627
  Transmission Date: 20230722
  Serious: Yes (Death, Life-Threatening, Hospitalization, Other)
  Sender: FDA-Public Use
  Company Number: GR-ACTELION-A-CH2019-199974

PATIENT
  Age: 51 Year
  Sex: Female
  Weight: 48 kg

DRUGS (29)
  1. OPSUMIT [Suspect]
     Active Substance: MACITENTAN
     Indication: Pulmonary arterial hypertension
     Dosage: 10 MG, QD
     Route: 048
     Dates: start: 20181218, end: 20200111
  2. UPTRAVI [Suspect]
     Active Substance: SELEXIPAG
     Indication: Pulmonary arterial hypertension
     Dosage: 2400 MCG, QD
     Route: 048
     Dates: start: 20190816, end: 20191224
  3. UPTRAVI [Suspect]
     Active Substance: SELEXIPAG
     Dosage: 400 MCG, QD
     Route: 048
     Dates: start: 20190712, end: 20190718
  4. UPTRAVI [Suspect]
     Active Substance: SELEXIPAG
     Dosage: 800 MCG, QD
     Route: 048
     Dates: start: 20190719, end: 20190725
  5. UPTRAVI [Suspect]
     Active Substance: SELEXIPAG
     Dosage: 1200 MCG, QD
     Route: 048
     Dates: start: 20190725, end: 20190801
  6. UPTRAVI [Suspect]
     Active Substance: SELEXIPAG
     Dosage: 1600 MCG, QD
     Route: 048
     Dates: start: 20190802, end: 20190808
  7. UPTRAVI [Suspect]
     Active Substance: SELEXIPAG
     Dosage: 2000 MCG, QD
     Route: 048
     Dates: start: 20190808, end: 20190815
  8. VELETRI [Suspect]
     Active Substance: EPOPROSTENOL
     Indication: Pulmonary arterial hypertension
     Dosage: 0.85 NG/KG, QD
     Route: 042
     Dates: start: 20200105, end: 20200119
  9. VELETRI [Suspect]
     Active Substance: EPOPROSTENOL
     Indication: Disease progression
     Dosage: 0.5 NG/KG, QD
     Route: 042
     Dates: start: 20191127, end: 20191128
  10. VELETRI [Suspect]
     Active Substance: EPOPROSTENOL
     Dosage: 0.25 NG/KG, QD
     Route: 042
     Dates: start: 20191224, end: 20191225
  11. VELETRI [Suspect]
     Active Substance: EPOPROSTENOL
     Dosage: 0.55 NG/KG, QD
     Route: 042
     Dates: start: 20191228, end: 20191229
  12. VELETRI [Suspect]
     Active Substance: EPOPROSTENOL
     Dosage: 0.65 NG/KG, QD
     Route: 042
     Dates: start: 20191230, end: 20200102
  13. VELETRI [Suspect]
     Active Substance: EPOPROSTENOL
     Dosage: 0.75 NG/KG, QD
     Route: 042
     Dates: start: 20200103, end: 20200104
  14. VELETRI [Suspect]
     Active Substance: EPOPROSTENOL
     Dosage: 0.8 NG/KG, QD
     Route: 042
     Dates: start: 20200104, end: 20200106
  15. VELETRI [Suspect]
     Active Substance: EPOPROSTENOL
     Dosage: 0.85 NG/KG, QD
     Route: 042
     Dates: start: 20200105, end: 20200119
  16. VELETRI [Suspect]
     Active Substance: EPOPROSTENOL
     Dosage: 0.9 NG/KG, QD
     Route: 042
     Dates: start: 20200120, end: 20200121
  17. VELETRI [Suspect]
     Active Substance: EPOPROSTENOL
     Dosage: 0.95 NG/KG, QD
     Route: 042
     Dates: start: 20200121, end: 20200124
  18. VELETRI [Suspect]
     Active Substance: EPOPROSTENOL
     Dosage: 1 NG/KG, QD
     Route: 042
     Dates: start: 20200125
  19. VELETRI [Suspect]
     Active Substance: EPOPROSTENOL
     Dosage: 1.1 NG/KG, QD
     Route: 042
     Dates: start: 20200217, end: 20200224
  20. VELETRI [Suspect]
     Active Substance: EPOPROSTENOL
     Dosage: 115 NG/KG, QD
     Route: 042
     Dates: start: 20200224, end: 20200309
  21. VELETRI [Suspect]
     Active Substance: EPOPROSTENOL
     Dosage: 125 NG/KG, QD
     Route: 042
     Dates: start: 20200309, end: 20200610
  22. VELETRI [Suspect]
     Active Substance: EPOPROSTENOL
     Route: 042
     Dates: start: 20191128, end: 20191128
  23. VELETRI [Suspect]
     Active Substance: EPOPROSTENOL
     Route: 042
     Dates: start: 20200611, end: 20200611
  24. ADCIRCA [Concomitant]
     Active Substance: TADALAFIL
     Indication: Pulmonary arterial hypertension
     Dosage: 40 MG, QD
     Route: 048
     Dates: start: 20181218
  25. TROFOCARD [Concomitant]
     Indication: Blood magnesium decreased
     Dosage: 1 DF, OD
     Route: 048
     Dates: start: 20191218
  26. TROFOCARD [Concomitant]
     Dosage: 1 DF, BID
     Route: 048
     Dates: start: 20191217, end: 20191218
  27. ENOXAPARIN SODIUM [Concomitant]
     Active Substance: ENOXAPARIN SODIUM
     Indication: Prophylaxis
     Dosage: 40 MG, OD
     Route: 058
     Dates: start: 20191216
  28. OMEPRAZOLE MAGNESIUM [Concomitant]
     Active Substance: OMEPRAZOLE MAGNESIUM
     Dosage: UNK
     Route: 048
     Dates: start: 20191213
  29. AMBRISENTAN [Concomitant]
     Active Substance: AMBRISENTAN
     Indication: Pulmonary arterial hypertension
     Dosage: 5 MG, QD
     Route: 042
     Dates: start: 20200111

REACTIONS (14)
  - Respiratory tract infection [Fatal]
  - Purulent discharge [Fatal]
  - Pulmonary arterial hypertension [Fatal]
  - Dyspnoea [Recovering/Resolving]
  - N-terminal prohormone brain natriuretic peptide increased [Recovering/Resolving]
  - Condition aggravated [Recovering/Resolving]
  - Disease progression [Recovering/Resolving]
  - Fatigue [Unknown]
  - Diarrhoea [Unknown]
  - Cardiac failure [Unknown]
  - Haematocrit decreased [Unknown]
  - Blood urea decreased [Unknown]
  - Blood alkaline phosphatase increased [Unknown]
  - Blood creatine phosphokinase decreased [Unknown]

NARRATIVE: CASE EVENT DATE: 20191201
